FAERS Safety Report 13426301 (Version 1)
Quarter: 2017Q2

REPORT INFORMATION
  Report Type: Spontaneous
  Country: US (occurrence: US)
  Receive Date: 20170410
  Receipt Date: 20170410
  Transmission Date: 20170830
  Serious: No
  Sender: FDA-Public Use
  Company Number: None

PATIENT
  Age: 58 Year
  Sex: Female

DRUGS (2)
  1. MYCOPHENOLAT MOF CAP 250MG [Suspect]
     Active Substance: MYCOPHENOLATE MOFETIL
     Indication: LIVER TRANSPLANT
  2. SIROLIMUS TAB 1MG [Suspect]
     Active Substance: SIROLIMUS
     Indication: LIVER TRANSPLANT

REACTIONS (2)
  - Eye oedema [None]
  - Visual impairment [None]

NARRATIVE: CASE EVENT DATE: 20170410
